FAERS Safety Report 12463366 (Version 1)
Quarter: 2016Q2

REPORT INFORMATION
  Report Type: Spontaneous
  Country: FR (occurrence: FR)
  Receive Date: 20160614
  Receipt Date: 20160614
  Transmission Date: 20160815
  Serious: Yes (Hospitalization)
  Sender: FDA-Public Use
  Company Number: FR-ACCORD-041515

PATIENT
  Age: 65 Year
  Sex: Female

DRUGS (4)
  1. CALCIUM FOLINATE [Suspect]
     Active Substance: LEUCOVORIN CALCIUM
     Indication: COLORECTAL CANCER
     Dosage: 400 MG FOR 1 CYCLE
     Route: 042
     Dates: start: 20160426, end: 20160426
  2. ZALTRAP [Suspect]
     Active Substance: ZIV-AFLIBERCEPT
     Indication: COLORECTAL CANCER
     Dosage: STRENGTH: 25 MG/ML, 260 MG FOR 1 CYCLE
     Route: 042
     Dates: start: 20160426, end: 20160426
  3. FLUOROURACIL ACCORD [Suspect]
     Active Substance: FLUOROURACIL
     Indication: COLORECTAL CANCER
     Dosage: STRENGTH: 50 MG/ML
     Route: 042
     Dates: start: 20160426, end: 20160427
  4. IRINOTECAN HOSPIRA [Suspect]
     Active Substance: IRINOTECAN
     Indication: COLORECTAL CANCER
     Dosage: STRENGTH: 20 MG/ML, 270 MG FOR 1 CYCLE
     Route: 042
     Dates: start: 20160426, end: 20160426

REACTIONS (2)
  - Respiratory failure [Recovering/Resolving]
  - Interstitial lung disease [Recovering/Resolving]

NARRATIVE: CASE EVENT DATE: 20160504
